FAERS Safety Report 10347850 (Version 1)
Quarter: 2014Q3

REPORT INFORMATION
  Report Type: Spontaneous
  Country: FR (occurrence: FR)
  Receive Date: 20140729
  Receipt Date: 20140729
  Transmission Date: 20150326
  Serious: Yes (Hospitalization)
  Sender: FDA-Public Use
  Company Number: FR-PFIZER INC-2014209016

PATIENT
  Age: 76 Year
  Sex: Female

DRUGS (4)
  1. AMLOR [Suspect]
     Active Substance: AMLODIPINE BESYLATE
     Dosage: 12 TABLETS
     Route: 048
     Dates: start: 20140429, end: 20140510
  2. NISIS [Suspect]
     Active Substance: VALSARTAN
     Dosage: UNK
     Route: 048
     Dates: start: 20140604
  3. TRANXENE T-TAB [Concomitant]
     Active Substance: CLORAZEPATE DIPOTASSIUM
  4. NISIS [Suspect]
     Active Substance: VALSARTAN
     Dosage: UNK
     Route: 048
     Dates: end: 20140429

REACTIONS (3)
  - Eosinophilia [Recovering/Resolving]
  - Oedema peripheral [Unknown]
  - Rash erythematous [Recovering/Resolving]

NARRATIVE: CASE EVENT DATE: 20140610
